FAERS Safety Report 14774323 (Version 1)
Quarter: 2018Q2

REPORT INFORMATION
  Report Type: Spontaneous
  Country: US (occurrence: US)
  Receive Date: 20180411
  Receipt Date: 20180411
  Transmission Date: 20180711
  Serious: Yes (Hospitalization)
  Sender: FDA-Public Use
  Company Number: None

PATIENT
  Age: 58 Year
  Sex: Male

DRUGS (18)
  1. HYDROXYZ HCL [Concomitant]
     Active Substance: HYDROXYZINE HYDROCHLORIDE
  2. FLUTICASONE SPR [Concomitant]
  3. SODIUM CHLOR SOL [Concomitant]
  4. RANITIDINE. [Concomitant]
     Active Substance: RANITIDINE
  5. POLYETH GLYC POW [Concomitant]
  6. CIPROFLOXACIN. [Concomitant]
     Active Substance: CIPROFLOXACIN
  7. VENTOLIN [Concomitant]
     Active Substance: ALBUTEROL SULFATE
  8. BUPROPION HCL [Concomitant]
     Active Substance: BUPROPION HYDROCHLORIDE
  9. VALSARTAN AND HYDROCHLOROTHIAZIDE [Concomitant]
     Active Substance: HYDROCHLOROTHIAZIDE\VALSARTAN
  10. PREDNISOLONE SUS [Concomitant]
  11. FERROUS SULF [Concomitant]
     Active Substance: FERROUS SULFATE
  12. PULMOZYME [Suspect]
     Active Substance: DORNASE ALFA
     Indication: CYSTIC FIBROSIS
     Route: 055
     Dates: start: 20171116
  13. TAMSULOSIN [Concomitant]
     Active Substance: TAMSULOSIN
  14. LEVOFLOXACIN. [Concomitant]
     Active Substance: LEVOFLOXACIN
  15. SYMBICORT [Concomitant]
     Active Substance: BUDESONIDE\FORMOTEROL FUMARATE DIHYDRATE
  16. CLONIDINE. [Concomitant]
     Active Substance: CLONIDINE
  17. BENZOYL PER LIQ [Concomitant]
  18. TEMAZEPAM. [Concomitant]
     Active Substance: TEMAZEPAM

REACTIONS (1)
  - Respiratory disorder [None]

NARRATIVE: CASE EVENT DATE: 20180409
